FAERS Safety Report 5535808-2 (Version None)
Quarter: 2007Q4

REPORT INFORMATION
  Report Type: 
  Country: None (occurrence: None)
  Receive Date: 20071206
  Receipt Date: 20071130
  Transmission Date: 20080405
  Serious: Yes (Other)
  Sender: FDA-Public Use
  Company Number: A0696790A

PATIENT
  Age: 47 Year
  Sex: Male

DRUGS (1)
  1. ADVAIR DISKUS 100/50 [Suspect]
     Indication: WHEEZING
     Route: 055

REACTIONS (5)
  - BRONCHOPNEUMONIA [None]
  - DEAFNESS [None]
  - ORAL FUNGAL INFECTION [None]
  - RESPIRATORY DISORDER [None]
  - SENSATION OF FOREIGN BODY [None]
